FAERS Safety Report 4681658-9 (Version None)
Quarter: 2005Q2

REPORT INFORMATION
  Report Type: 
  Country: None (occurrence: None)
  Receive Date: 20050603
  Receipt Date: 20050525
  Transmission Date: 20051028
  Serious: Yes (Death, Hospitalization)
  Sender: FDA-Public Use
  Company Number: JP-MERCK-0505USA03279

PATIENT
  Sex: Female
  Weight: 2 kg

DRUGS (2)
  1. INDOCIN [Suspect]
     Indication: TOCOLYSIS
  2. INDOCIN [Suspect]

REACTIONS (4)
  - BRADYCARDIA FOETAL [None]
  - DUCTUS ARTERIOSUS PREMATURE CLOSURE [None]
  - INCREASED VENTRICULAR AFTERLOAD [None]
  - NEONATAL ASPHYXIA [None]
